FAERS Safety Report 25360861 (Version 1)
Quarter: 2025Q2

REPORT INFORMATION
  Report Type: Spontaneous
  Country: US (occurrence: US)
  Receive Date: 20250527
  Receipt Date: 20250527
  Transmission Date: 20250717
  Serious: No
  Sender: JOHNSON AND JOHNSON
  Company Number: US-VIIV HEALTHCARE-US2025AMR063103

PATIENT
  Sex: Male

DRUGS (2)
  1. RILPIVIRINE [Suspect]
     Active Substance: RILPIVIRINE
     Indication: HIV infection
     Dosage: UNK, Q2M, 2 INJECTIONS EVERY 2 MONTHS
     Route: 065
     Dates: start: 2024
  2. CABOTEGRAVIR [Suspect]
     Active Substance: CABOTEGRAVIR
     Indication: HIV infection
     Dosage: UNK, Q2M, 2 INJECTIONS EVERY 2 MONTHS
     Route: 065
     Dates: start: 2024

REACTIONS (2)
  - Injection site swelling [Not Recovered/Not Resolved]
  - Injection site discomfort [Unknown]
